FAERS Safety Report 15953067 (Version 2)
Quarter: 2019Q1

REPORT INFORMATION
  Report Type: Report from Study
  Country: US (occurrence: US)
  Receive Date: 20190212
  Receipt Date: 20190214
  Transmission Date: 20190417
  Serious: No
  Sender: FDA-Public Use
  Company Number: PHEH2019US005958

PATIENT
  Sex: Female
  Weight: 13 kg

DRUGS (1)
  1. ILARIS [Suspect]
     Active Substance: CANAKINUMAB
     Indication: STILL^S DISEASE
     Dosage: 60 MG, QMO
     Route: 058

REACTIONS (4)
  - Eosinophil count increased [Recovering/Resolving]
  - Vomiting [Recovering/Resolving]
  - White blood cell count increased [Recovering/Resolving]
  - Hypersensitivity [Recovering/Resolving]
